FAERS Safety Report 20101179 (Version 1)
Quarter: 2021Q4

REPORT INFORMATION
  Report Type: Spontaneous
  Country: US (occurrence: None)
  Receive Date: 20211122
  Receipt Date: 20211122
  Transmission Date: 20220303
  Serious: Yes (Life-Threatening)
  Sender: FDA-Public Use
  Company Number: None

PATIENT
  Age: 21 Year
  Sex: Male
  Weight: 89 kg

DRUGS (3)
  1. ENTYVIO [Suspect]
     Active Substance: VEDOLIZUMAB
     Indication: Inflammatory bowel disease
     Dosage: OTHER FREQUENCY : EVERY 5 WEEKS;?
     Route: 042
     Dates: start: 20181109, end: 20211019
  2. REMICADE [Suspect]
     Active Substance: INFLIXIMAB
     Dosage: OTHER FREQUENCY : EVERY 5 WEEKS;?
     Route: 042
     Dates: start: 20171108, end: 20211023
  3. methotrexate 7.5 mg [Concomitant]

REACTIONS (3)
  - Abdominal neoplasm [None]
  - Metastases to liver [None]
  - Follicular dendritic cell sarcoma [None]

NARRATIVE: CASE EVENT DATE: 20211019
